FAERS Safety Report 6638085-4 (Version None)
Quarter: 2010Q1

REPORT INFORMATION
  Report Type: 
  Country: None (occurrence: None)
  Receive Date: 20100317
  Receipt Date: 20100308
  Transmission Date: 20100710
  Serious: Yes (Other)
  Sender: FDA-Public Use
  Company Number: BR-PFIZER INC-2010003055

PATIENT
  Age: 20 Year
  Sex: Female
  Weight: 85 kg

DRUGS (1)
  1. DEPO-PROVERA [Suspect]
     Indication: CONTRACEPTION
     Dosage: 150 MG, EVERY 3 MONTHS
     Dates: start: 20100106

REACTIONS (6)
  - ACNE [None]
  - DIARRHOEA [None]
  - HEADACHE [None]
  - HYPOTENSION [None]
  - MENSTRUAL DISORDER [None]
  - NAUSEA [None]
